FAERS Safety Report 4911090-1 (Version None)
Quarter: 2006Q1

REPORT INFORMATION
  Report Type: 
  Country: None (occurrence: None)
  Receive Date: 20060209
  Receipt Date: 20060130
  Transmission Date: 20060701
  Serious: Yes (Death)
  Sender: FDA-Public Use
  Company Number: FR200601005217

PATIENT
  Age: 35 Year
  Sex: Female

DRUGS (5)
  1. ZYPREXA [Suspect]
     Indication: MANIA
     Dosage: INTRAMUSCULAR
     Route: 030
     Dates: start: 20060112, end: 20060114
  2. ZYPREXA [Suspect]
     Indication: MANIA
     Dosage: INTRAMUSCULAR
     Route: 030
     Dates: start: 20060123, end: 20060123
  3. ZYPREXA [Suspect]
     Indication: MANIA
     Dosage: 20 MG, DAILY (1/D), ORAL
     Route: 048
     Dates: start: 20060112, end: 20060126
  4. EQUANIL [Concomitant]
  5. VALIUM FOR INJECTION (BENZOIC ACID, BENZYL ALCOHOL, DIAZEPAM, ETHANOL, [Concomitant]

REACTIONS (3)
  - AGITATION [None]
  - DRUG INEFFECTIVE [None]
  - MANIA [None]
